FAERS Safety Report 15928516 (Version 4)
Quarter: 2019Q2

REPORT INFORMATION
  Report Type: Report from Study
  Country: DE (occurrence: DE)
  Receive Date: 20190206
  Receipt Date: 20190621
  Transmission Date: 20190711
  Serious: Yes (Other)
  Sender: FDA-Public Use
  Company Number: PHHY2019DE025313

PATIENT
  Sex: Female
  Weight: 64 kg

DRUGS (27)
  1. COSENTYX [Suspect]
     Active Substance: SECUKINUMAB
     Dosage: 150 MG, ONCE/SINGLE
     Route: 065
     Dates: start: 20181106, end: 20181106
  2. COSENTYX [Suspect]
     Active Substance: SECUKINUMAB
     Dosage: 150 MG, ONCE/SINGLE
     Route: 065
     Dates: start: 20190416, end: 20190416
  3. FOLIC ACID. [Concomitant]
     Active Substance: FOLIC ACID
     Indication: PRODUCT USED FOR UNKNOWN INDICATION
     Dosage: 5 MG, QW2
     Route: 048
     Dates: start: 2006, end: 20181204
  4. CELEBREX [Concomitant]
     Active Substance: CELECOXIB
     Indication: ARTHRALGIA
     Dosage: 200 MG, BID
     Route: 048
     Dates: start: 20190410, end: 20190424
  5. COSENTYX [Suspect]
     Active Substance: SECUKINUMAB
     Indication: PSORIATIC ARTHROPATHY
     Dosage: 150 MG, ONCE/SINGLE
     Route: 065
     Dates: start: 20181016, end: 20181016
  6. OMEPRAZOLE. [Concomitant]
     Active Substance: OMEPRAZOLE
     Indication: GASTROOESOPHAGEAL REFLUX DISEASE
     Dosage: 40 MG, QD
     Route: 048
     Dates: start: 2016, end: 20190210
  7. BUSCOPAN [Concomitant]
     Active Substance: BUTYLSCOPOLAMINE BROMIDE
     Indication: BACK PAIN
     Dosage: 1 DF, PRN
     Route: 048
     Dates: start: 20190131, end: 201903
  8. METHOTREXATE. [Concomitant]
     Active Substance: METHOTREXATE
     Indication: PSORIATIC ARTHROPATHY
     Dosage: 10 MG, QW2
     Route: 048
     Dates: start: 201110, end: 20181203
  9. NOVAMINSULFON [Concomitant]
     Active Substance: METAMIZOLE
     Indication: ABDOMINAL PAIN LOWER
  10. BUSCOPAN [Concomitant]
     Active Substance: BUTYLSCOPOLAMINE BROMIDE
     Indication: ABDOMINAL PAIN LOWER
  11. COSENTYX [Suspect]
     Active Substance: SECUKINUMAB
     Dosage: 150 MG, ONCE/SINGLE
     Route: 065
     Dates: start: 20181023, end: 20181023
  12. COSENTYX [Suspect]
     Active Substance: SECUKINUMAB
     Dosage: 150 MG, ONCE/SINGLE
     Route: 065
     Dates: start: 20181211, end: 20181211
  13. COSENTYX [Suspect]
     Active Substance: SECUKINUMAB
     Dosage: 150 MG, ONCE/SINGLE
     Route: 065
     Dates: start: 20190122, end: 20190122
  14. COSENTYX [Suspect]
     Active Substance: SECUKINUMAB
     Dosage: 150 MG, ONCE/SINGLE
     Route: 065
     Dates: start: 20190319, end: 20190319
  15. METHOTREXATE. [Concomitant]
     Active Substance: METHOTREXATE
     Dosage: 5 MG, QW
     Route: 048
     Dates: start: 20190218, end: 20190218
  16. RAMIPRIL. [Concomitant]
     Active Substance: RAMIPRIL
     Indication: HYPERTENSION
     Dosage: 5 MG, QD
     Route: 048
     Dates: start: 2016
  17. NOVAMINSULFON [Concomitant]
     Active Substance: METAMIZOLE
     Indication: PSORIATIC ARTHROPATHY
     Dosage: 30 GTT, PRN
     Route: 048
     Dates: start: 2014, end: 201812
  18. NOVAMINSULFON [Concomitant]
     Active Substance: METAMIZOLE
     Indication: ARTHRALGIA
     Dosage: 40 GTT, QD
     Route: 048
     Dates: start: 20190410, end: 20190424
  19. COSENTYX [Suspect]
     Active Substance: SECUKINUMAB
     Dosage: 150 MG, ONCE/SINGLE
     Route: 065
     Dates: start: 20181030, end: 20181030
  20. COSENTYX [Suspect]
     Active Substance: SECUKINUMAB
     Dosage: 150 MG, ONCE/SINGLE
     Route: 065
     Dates: start: 20181113, end: 20181113
  21. METHOTREXATE. [Concomitant]
     Active Substance: METHOTREXATE
     Dosage: 10 MG, QW
     Route: 048
     Dates: start: 20190304
  22. DEKRISTOL [Concomitant]
     Active Substance: CHOLECALCIFEROL
     Indication: OSTEOPOROSIS PROPHYLAXIS
     Dosage: 20000 IU, EVERY 14 DAYS
     Route: 048
     Dates: start: 201808
  23. COSENTYX [Suspect]
     Active Substance: SECUKINUMAB
     Dosage: 150 MG, ONCE/SINGLE
     Route: 065
     Dates: start: 20190219, end: 20190219
  24. NOVAMINSULFON [Concomitant]
     Active Substance: METAMIZOLE
     Indication: BACK PAIN
     Dosage: 30 GTT, PRN
     Route: 048
     Dates: start: 20190131, end: 201903
  25. CELEBREX [Concomitant]
     Active Substance: CELECOXIB
     Indication: PSORIATIC ARTHROPATHY
     Dosage: 200 MG, BID
     Route: 048
     Dates: start: 20181016, end: 20181208
  26. FOLIC ACID. [Concomitant]
     Active Substance: FOLIC ACID
     Dosage: 5 MG, QW
     Route: 048
     Dates: start: 20190219, end: 20190219
  27. FOLIC ACID. [Concomitant]
     Active Substance: FOLIC ACID
     Dosage: 5 MG, QW
     Route: 048
     Dates: start: 20190305

REACTIONS (3)
  - Relapsing fever [Recovered/Resolved]
  - Leukocyturia [Unknown]
  - Pneumonia [Recovered/Resolved]

NARRATIVE: CASE EVENT DATE: 20181202
